FAERS Safety Report 19456095 (Version 1)
Quarter: 2021Q2

REPORT INFORMATION
  Report Type: Spontaneous
  Country: US (occurrence: US)
  Receive Date: 20210624
  Receipt Date: 20210624
  Transmission Date: 20210717
  Serious: No
  Sender: FDA-Public Use
  Company Number: None

PATIENT
  Sex: Male
  Weight: 77.11 kg

DRUGS (6)
  1. ALPRAZOLAM. [Suspect]
     Active Substance: ALPRAZOLAM
     Indication: ANXIETY
     Dosage: ?          QUANTITY:1 PILL;?
     Route: 048
     Dates: end: 20210502
  2. FLAXSEED [Concomitant]
     Active Substance: FLAX SEED
  3. THERAWORX [Concomitant]
  4. GARLIC. [Concomitant]
     Active Substance: GARLIC
  5. TURMERIC [Concomitant]
     Active Substance: HERBALS\TURMERIC
  6. VITAMIN D [Concomitant]
     Active Substance: VITAMIN D NOS

REACTIONS (4)
  - Dysuria [None]
  - Tinnitus [None]
  - Gastric disorder [None]
  - Drug ineffective [None]
